FAERS Safety Report 5929611-9 (Version None)
Quarter: 2008Q3

REPORT INFORMATION
  Report Type: 
  Country: None (occurrence: None)
  Receive Date: 20080929
  Receipt Date: 20080603
  Transmission Date: 20090109
  Serious: Yes (Death)
  Sender: FDA-Public Use
  Company Number: PHEH2008US04352

PATIENT
  Age: 60 Year
  Sex: Female

DRUGS (1)
  1. TASIGNA [Suspect]
     Indication: CHRONIC MYELOID LEUKAEMIA
     Dosage: 2 TABS TWICE/DAILY, ORAL
     Route: 048
     Dates: start: 20071227, end: 20080414

REACTIONS (1)
  - MALIGNANT NEOPLASM PROGRESSION [None]
